FAERS Safety Report 8446174-7 (Version None)
Quarter: 2012Q2

REPORT INFORMATION
  Report Type: 
  Country: None (occurrence: None)
  Receive Date: 20120618
  Receipt Date: 20120606
  Transmission Date: 20120825
  Serious: Yes (Life-Threatening, Hospitalization)
  Sender: FDA-Public Use
  Company Number: JP-GILEAD-E2B_00001395

PATIENT
  Age: 60 Year
  Sex: Female

DRUGS (18)
  1. AMINO ACID INJ [Concomitant]
  2. RABEPRAZOLE SODIUM [Concomitant]
  3. ALFAROL [Concomitant]
  4. AMOBAN [Concomitant]
  5. ZOLPIDEM [Concomitant]
  6. FUROSEMIDE [Concomitant]
  7. MAGLAX [Concomitant]
  8. CYCLOSPORINE [Concomitant]
     Indication: INTERSTITIAL LUNG DISEASE
     Route: 065
  9. GASMOTIN [Concomitant]
  10. PAXIL [Concomitant]
  11. AMBRISENTAN [Suspect]
     Indication: COLLAGEN DISORDER
  12. AMBRISENTAN [Suspect]
     Indication: PULMONARY ARTERIAL HYPERTENSION
     Dosage: 2.5 MG, QD
     Route: 048
     Dates: start: 20110517, end: 20110523
  13. ALDACTONE [Concomitant]
  14. WARFARIN SODIUM [Concomitant]
  15. MUCOSTA [Concomitant]
  16. CALCIUM CARBONATE [Concomitant]
  17. FUNGIZONE [Concomitant]
  18. COTRIM [Concomitant]

REACTIONS (2)
  - INTERSTITIAL LUNG DISEASE [None]
  - RESPIRATORY FAILURE [None]
